FAERS Safety Report 25656231 (Version 1)
Quarter: 2025Q3

REPORT INFORMATION
  Report Type: Spontaneous
  Country: CN (occurrence: CN)
  Receive Date: 20250807
  Receipt Date: 20250807
  Transmission Date: 20251020
  Serious: Yes (Other)
  Sender: NOVARTIS
  Company Number: CN-002147023-NVSC2025CN123106

PATIENT
  Age: 40 Year
  Sex: Female

DRUGS (3)
  1. CYCLOSPORINE [Suspect]
     Active Substance: CYCLOSPORINE
     Indication: Aplastic anaemia
     Route: 048
     Dates: start: 20250215
  2. CYCLOSPORINE [Suspect]
     Active Substance: CYCLOSPORINE
     Dosage: 75 MG, BID
     Route: 048
     Dates: start: 20250606, end: 20250715
  3. RITUXIMAB [Concomitant]
     Active Substance: RITUXIMAB
     Indication: Refractoriness to platelet transfusion
     Dosage: 100 MG, QD
     Route: 041
     Dates: start: 20250708, end: 20250708

REACTIONS (3)
  - Blood pressure increased [Recovering/Resolving]
  - Hypotension [Recovering/Resolving]
  - Headache [Unknown]

NARRATIVE: CASE EVENT DATE: 20250604
